FAERS Safety Report 12774202 (Version 1)
Quarter: 2016Q3

REPORT INFORMATION
  Report Type: Spontaneous
  Country: US (occurrence: US)
  Receive Date: 20160923
  Receipt Date: 20160923
  Transmission Date: 20161109
  Serious: No
  Sender: FDA-Public Use
  Company Number: US-PFIZER INC-2016444089

PATIENT
  Age: 69 Year
  Sex: Male

DRUGS (9)
  1. SUTENT [Suspect]
     Active Substance: SUNITINIB MALATE
     Dosage: 37.5 MG, CYCLIC (4 WEEKS ON AND 2 WEEKS OFF) AND (2 WEEKS ON 1 WEEK OFF)
  2. PRAVASTATIN. [Concomitant]
     Active Substance: PRAVASTATIN
  3. AMLODIPINE [Concomitant]
     Active Substance: AMLODIPINE BESYLATE
     Dosage: UNK
  4. TRICOR [Concomitant]
     Active Substance: FENOFIBRATE
  5. SUTENT [Suspect]
     Active Substance: SUNITINIB MALATE
     Indication: RENAL CANCER
     Dosage: 50 MG, UNK
  6. PROZAC [Concomitant]
     Active Substance: FLUOXETINE HYDROCHLORIDE
  7. ZANTAC [Concomitant]
     Active Substance: RANITIDINE HYDROCHLORIDE
  8. PROMETHAZINE [Concomitant]
     Active Substance: PROMETHAZINE\PROMETHAZINE HYDROCHLORIDE
  9. ABILIFY [Concomitant]
     Active Substance: ARIPIPRAZOLE

REACTIONS (1)
  - Discomfort [Unknown]
